FAERS Safety Report 22763115 (Version 4)
Quarter: 2023Q4

REPORT INFORMATION
  Report Type: Report from Study
  Country: US (occurrence: US)
  Receive Date: 20230729
  Receipt Date: 20231108
  Transmission Date: 20240110
  Serious: No
  Sender: FDA-Public Use
  Company Number: US-002147023-NVSC2023US165895

PATIENT
  Sex: Female

DRUGS (2)
  1. KISQALI [Suspect]
     Active Substance: RIBOCICLIB
     Indication: Breast cancer
     Dosage: 600 UG, QD
     Route: 048
     Dates: start: 202306
  2. KISQALI [Suspect]
     Active Substance: RIBOCICLIB
     Dosage: 600 MG, QD
     Route: 048
     Dates: start: 202306

REACTIONS (7)
  - Nausea [Recovering/Resolving]
  - Pruritus [Unknown]
  - Diarrhoea [Unknown]
  - Burning sensation [Unknown]
  - Rash pruritic [Recovering/Resolving]
  - Peripheral swelling [Unknown]
  - Weight increased [Unknown]
